FAERS Safety Report 5410599-4 (Version None)
Quarter: 2007Q3

REPORT INFORMATION
  Report Type: 
  Country: None (occurrence: None)
  Receive Date: 20070810
  Receipt Date: 20070403
  Transmission Date: 20080115
  Serious: No
  Sender: FDA-Public Use
  Company Number: A0645802A

PATIENT
  Age: 60 Year
  Sex: Male

DRUGS (2)
  1. PAXIL [Suspect]
     Indication: DEPRESSION
     Route: 048
     Dates: start: 19950101, end: 19950101
  2. TRAZODONE HCL [Concomitant]

REACTIONS (6)
  - DISSOCIATION [None]
  - DISTURBANCE IN ATTENTION [None]
  - DRUG WITHDRAWAL SYNDROME [None]
  - EMOTIONAL DISORDER [None]
  - LOSS OF LIBIDO [None]
  - PARAESTHESIA [None]
